FAERS Safety Report 9071586 (Version 1)
Quarter: 2013Q1

REPORT INFORMATION
  Report Type: Spontaneous
  Country: US (occurrence: US)
  Receive Date: 20130206
  Receipt Date: 20130206
  Transmission Date: 20140127
  Serious: No
  Sender: FDA-Public Use
  Company Number: US-ALLERGAN-1213004US

PATIENT
  Age: 49 Year
  Sex: Female

DRUGS (3)
  1. RESTASIS? [Suspect]
     Indication: DRY EYE
     Dosage: 2 GTT, BID
     Route: 047
  2. C -ALBUMIN 5% [Concomitant]
     Indication: DRY EYE
     Dosage: 2 GTT, UNK
  3. SYSTANE [Concomitant]
     Indication: DRY EYE
     Dosage: UNK UNK, PRN
     Route: 047

REACTIONS (6)
  - Eye pain [Unknown]
  - Vision blurred [Unknown]
  - Foreign body sensation in eyes [Unknown]
  - Eye irritation [Unknown]
  - Scleral hyperaemia [Unknown]
  - Ocular hyperaemia [Unknown]
